FAERS Safety Report 22018231 (Version 3)
Quarter: 2023Q1

REPORT INFORMATION
  Report Type: Report from Study
  Country: NL (occurrence: NL)
  Receive Date: 20230221
  Receipt Date: 20230315
  Transmission Date: 20230418
  Serious: Yes (Hospitalization)
  Sender: FDA-Public Use
  Company Number: NL-GILEAD-2019-0407344

PATIENT
  Age: 67 Year
  Sex: Female
  Weight: 60 kg

DRUGS (16)
  1. AXICABTAGENE CILOLEUCEL [Suspect]
     Active Substance: AXICABTAGENE CILOLEUCEL
     Indication: Diffuse large B-cell lymphoma
     Dosage: 68 ML, ONCE
     Route: 042
     Dates: start: 20190215, end: 20190215
  2. CYCLOPHOSPHAMIDE [Suspect]
     Active Substance: CYCLOPHOSPHAMIDE
     Indication: Bone marrow conditioning regimen
     Dosage: 850 MG, QD
     Route: 042
     Dates: start: 20190210, end: 20190212
  3. FLUDARABINE [Suspect]
     Active Substance: FLUDARABINE PHOSPHATE
     Indication: Bone marrow conditioning regimen
     Dosage: 51 MG, QD
     Route: 042
     Dates: start: 20190210, end: 20190212
  4. MESNA [Suspect]
     Active Substance: MESNA
     Indication: Prophylaxis
     Dosage: 850
     Route: 065
     Dates: start: 20190210, end: 20190212
  5. VALACYCLOVIR HYDROCHLORIDE [Concomitant]
     Active Substance: VALACYCLOVIR HYDROCHLORIDE
     Dosage: 500,MG,TWICE DAILY
     Route: 048
     Dates: start: 20190209
  6. SULFAMETHOXAZOLE\TRIMETHOPRIM [Concomitant]
     Active Substance: SULFAMETHOXAZOLE\TRIMETHOPRIM
     Dosage: 480,MG,DAILY
     Route: 048
     Dates: start: 20190212
  7. OXYCODONE [Concomitant]
     Active Substance: OXYCODONE
     Dosage: 5,MG,AS NECESSARY
     Route: 048
     Dates: start: 20190224
  8. POTASSIUM CHLORIDE [Concomitant]
     Active Substance: POTASSIUM CHLORIDE
     Dosage: 30,OTHER,DAILY
     Route: 042
     Dates: start: 20190508, end: 20190509
  9. FOSFAATKLYSMA [Concomitant]
     Dosage: 30,OTHER,DAILY
     Route: 048
     Dates: start: 20190508, end: 20190509
  10. ACETAMINOPHEN [Concomitant]
     Active Substance: ACETAMINOPHEN
     Dosage: 1000,MG,ONCE
     Route: 042
     Dates: start: 20190508, end: 20190508
  11. OXAZEPAM [Concomitant]
     Active Substance: OXAZEPAM
     Dosage: 10,MG,ONCE
     Route: 048
     Dates: start: 20190508, end: 20190508
  12. SODIUM PHOSPHATE [Concomitant]
     Active Substance: SODIUM PHOSPHATE
     Dosage: 20.4,OTHER,DAILY
     Route: 042
     Dates: start: 20190509, end: 20190511
  13. TEMAZEPAM [Concomitant]
     Active Substance: TEMAZEPAM
     Dosage: 10,MG,AS NECESSARY
     Route: 048
     Dates: start: 20190511
  14. DEXTROSE\SODIUM CHLORIDE [Concomitant]
     Active Substance: DEXTROSE\SODIUM CHLORIDE
     Dosage: 1000,ML,ONCE
     Route: 042
     Dates: start: 20190511, end: 20190511
  15. FILGRASTIM [Concomitant]
     Active Substance: FILGRASTIM
     Dosage: 300,UG,ONCE
     Route: 058
     Dates: start: 20190511, end: 20190511
  16. CIPROFLOXACIN [Concomitant]
     Active Substance: CIPROFLOXACIN
     Dosage: 500,MG,TWICE DAILY
     Route: 048
     Dates: start: 20190512, end: 20190523

REACTIONS (2)
  - Influenza [Recovered/Resolved]
  - Pseudomonal sepsis [Recovered/Resolved]

NARRATIVE: CASE EVENT DATE: 20190508
